FAERS Safety Report 25496320 (Version 1)
Quarter: 2025Q2

REPORT INFORMATION
  Report Type: Report from Study
  Country: US (occurrence: US)
  Receive Date: 20250630
  Receipt Date: 20250630
  Transmission Date: 20250717
  Serious: Yes (Hospitalization)
  Sender: ROCHE
  Company Number: US-ROCHE-10000323764

PATIENT
  Age: 42 Year
  Sex: Female
  Weight: 95.3 kg

DRUGS (67)
  1. OCRELIZUMAB [Suspect]
     Active Substance: OCRELIZUMAB
     Indication: Multiple sclerosis
     Dosage: SUBSEQUENT DOSE OF 300 MG
     Route: 042
     Dates: start: 20200722
  2. OCRELIZUMAB [Suspect]
     Active Substance: OCRELIZUMAB
     Route: 042
     Dates: start: 20200812
  3. OCRELIZUMAB [Suspect]
     Active Substance: OCRELIZUMAB
     Route: 042
     Dates: start: 20210608
  4. OCRELIZUMAB [Suspect]
     Active Substance: OCRELIZUMAB
     Route: 042
     Dates: start: 20211217
  5. OCRELIZUMAB [Suspect]
     Active Substance: OCRELIZUMAB
     Route: 042
     Dates: start: 20220512
  6. OCRELIZUMAB [Suspect]
     Active Substance: OCRELIZUMAB
     Route: 042
     Dates: start: 20230310
  7. OCRELIZUMAB [Suspect]
     Active Substance: OCRELIZUMAB
     Route: 042
     Dates: start: 20240425
  8. BUPROPION [Concomitant]
     Active Substance: BUPROPION
     Route: 048
     Dates: start: 2012
  9. ESCITALOPRAM OXALATE [Concomitant]
     Active Substance: ESCITALOPRAM OXALATE
     Route: 048
     Dates: start: 2012
  10. MELATONIN [Concomitant]
     Active Substance: MELATONIN
     Route: 048
     Dates: start: 2016, end: 20230313
  11. VITAMIN D [Concomitant]
     Active Substance: VITAMIN D NOS
     Indication: Multiple sclerosis
     Dosage: DOSE: 50,000 UNITS ?FREQUENCY: ONCE WEEKLY FOR 8 WEEK
     Route: 048
     Dates: start: 20200529, end: 20200724
  12. VITAMINS [Concomitant]
     Active Substance: VITAMINS
     Route: 048
     Dates: start: 2012, end: 20220805
  13. OMEPRAZOLE [Concomitant]
     Active Substance: OMEPRAZOLE
     Route: 048
     Dates: start: 2012
  14. BENZONATATE [Concomitant]
     Active Substance: BENZONATATE
     Route: 048
     Dates: start: 20220106, end: 20220113
  15. BENZONATATE [Concomitant]
     Active Substance: BENZONATATE
     Route: 048
     Dates: start: 20231128, end: 202312
  16. BENZONATATE [Concomitant]
     Active Substance: BENZONATATE
     Route: 048
     Dates: start: 20231128, end: 20231205
  17. DEXAMETHASONE [Concomitant]
     Active Substance: DEXAMETHASONE
     Dates: start: 20220102, end: 20220111
  18. DEXAMETHASONE [Concomitant]
     Active Substance: DEXAMETHASONE
     Dates: start: 20220106, end: 20220111
  19. DEXAMETHASONE [Concomitant]
     Active Substance: DEXAMETHASONE
     Route: 048
     Dates: start: 20221108, end: 20221118
  20. DOCUSATE SODIUM [Concomitant]
     Active Substance: DOCUSATE SODIUM
     Route: 048
     Dates: start: 20220106, end: 20220111
  21. DOCUSATE SODIUM [Concomitant]
     Active Substance: DOCUSATE SODIUM
     Dates: start: 20230210, end: 20230212
  22. ENOXAPARIN [Concomitant]
     Active Substance: ENOXAPARIN
     Route: 058
     Dates: start: 20220106, end: 20220108
  23. ENOXAPARIN [Concomitant]
     Active Substance: ENOXAPARIN
     Route: 058
     Dates: start: 20220106, end: 20220111
  24. ENOXAPARIN [Concomitant]
     Active Substance: ENOXAPARIN
     Route: 058
     Dates: start: 20220108, end: 20220111
  25. IBUPROFEN [Concomitant]
     Active Substance: IBUPROFEN
     Route: 048
     Dates: start: 20220106, end: 20240916
  26. ONDANSETRON [Concomitant]
     Active Substance: ONDANSETRON
     Dates: start: 20201226
  27. ONDANSETRON [Concomitant]
     Active Substance: ONDANSETRON
     Dates: start: 20220106
  28. PANTOPRAZOLE [Concomitant]
     Active Substance: PANTOPRAZOLE
     Route: 048
     Dates: start: 20220106, end: 20220111
  29. PANTOPRAZOLE [Concomitant]
     Active Substance: PANTOPRAZOLE
     Route: 048
     Dates: start: 20230210, end: 20230313
  30. RIVAROXABAN [Concomitant]
     Active Substance: RIVAROXABAN
     Route: 048
     Dates: start: 20220106, end: 20220108
  31. MONTELUKAST [Concomitant]
     Active Substance: MONTELUKAST
     Dates: start: 20220324
  32. ALBUTEROL [Concomitant]
     Active Substance: ALBUTEROL
     Dates: start: 20211229
  33. RIFAMPIN [Concomitant]
     Active Substance: RIFAMPIN
     Dates: start: 20220407, end: 20220409
  34. TRIAMCINOLONE [Concomitant]
     Active Substance: TRIAMCINOLONE
     Indication: Dermatitis
     Dates: start: 20220411, end: 20220805
  35. ESTRADIOL [Concomitant]
     Active Substance: ESTRADIOL
     Dates: start: 20120216, end: 20220805
  36. DOXYCYCLINE [Concomitant]
     Active Substance: DOXYCYCLINE
     Dates: start: 20200529, end: 20220805
  37. MINIVELLE [Concomitant]
     Active Substance: ESTRADIOL
     Dates: start: 20220428, end: 20220805
  38. PROGESTERONE [Concomitant]
     Active Substance: PROGESTERONE
     Route: 067
     Dates: start: 2020, end: 202011
  39. PROGESTERONE [Concomitant]
     Active Substance: PROGESTERONE
     Route: 067
     Dates: start: 20200831, end: 20220805
  40. PROGESTERONE [Concomitant]
     Active Substance: PROGESTERONE
     Route: 067
     Dates: start: 20220428, end: 20220606
  41. FLUTICASONE [Concomitant]
     Active Substance: FLUTICASONE
     Dates: start: 20220520, end: 20240925
  42. AMMONIUM LACTATE [Concomitant]
     Active Substance: AMMONIUM LACTATE
     Dates: start: 20220607
  43. TIXAGEVIMAB [Concomitant]
     Active Substance: TIXAGEVIMAB
     Dates: start: 20220902, end: 20220902
  44. DIPHTHERIA AND TETANUS TOXOIDS AND PERTUSSIS VACCINE [Concomitant]
     Active Substance: DIPHTHERIA AND TETANUS TOXOIDS AND PERTUSSIS VACCINE
     Dates: start: 20221216, end: 20221216
  45. BEBTELOVIMAB [Concomitant]
     Active Substance: BEBTELOVIMAB
     Indication: COVID-19
     Dates: start: 20221101
  46. AZELASTINE [Concomitant]
     Active Substance: AZELASTINE
     Dates: start: 20230320, end: 20230916
  47. DILAUDID [Concomitant]
     Active Substance: HYDROMORPHONE HYDROCHLORIDE
     Dates: start: 20231104, end: 20231104
  48. DILAUDID [Concomitant]
     Active Substance: HYDROMORPHONE HYDROCHLORIDE
     Dates: start: 20231104, end: 20231104
  49. TORADOL [Concomitant]
     Active Substance: KETOROLAC TROMETHAMINE
     Dates: start: 20231104, end: 20231104
  50. ZOFRAN [Concomitant]
     Active Substance: ONDANSETRON HYDROCHLORIDE
     Dates: start: 20231104, end: 20231104
  51. LACTATED RINGERS SOLUTION [Concomitant]
     Active Substance: CALCIUM CHLORIDE\POTASSIUM CHLORIDE\SODIUM CHLORIDE\SODIUM LACTATE
     Dates: start: 20231104, end: 20231104
  52. TESSALON [Concomitant]
     Active Substance: BENZONATATE
     Dates: start: 20231128, end: 202312
  53. AUGMENTIN [Concomitant]
     Active Substance: AMOXICILLIN\CLAVULANATE POTASSIUM
     Dates: start: 20231128, end: 202312
  54. ASPIRIN [Concomitant]
     Active Substance: ASPIRIN
     Route: 048
     Dates: start: 20200912, end: 20220111
  55. ASPIRIN [Concomitant]
     Active Substance: ASPIRIN
     Route: 048
     Dates: start: 20230311, end: 20230313
  56. ASPIRIN [Concomitant]
     Active Substance: ASPIRIN
     Route: 048
     Dates: start: 20240815, end: 20241106
  57. BACTRIM DS [Concomitant]
     Active Substance: SULFAMETHOXAZOLE\TRIMETHOPRIM
     Dates: start: 20230817, end: 20230817
  58. BACTRIM DS [Concomitant]
     Active Substance: SULFAMETHOXAZOLE\TRIMETHOPRIM
     Dates: start: 20230829, end: 20230911
  59. INAPSINE [Concomitant]
     Active Substance: DROPERIDOL
     Dates: start: 20231104, end: 20231104
  60. IOPAMIDOL [Concomitant]
     Active Substance: IOPAMIDOL
     Dates: start: 20231104, end: 20231104
  61. ACETAMINOPHEN [Concomitant]
     Active Substance: ACETAMINOPHEN
     Dates: start: 20220106
  62. ACETAMINOPHEN [Concomitant]
     Active Substance: ACETAMINOPHEN
     Route: 048
     Dates: start: 20220722
  63. sulfamethoxazole-trimethoprim (BACTRIMDS) 800-160 mg [Concomitant]
     Dates: start: 20230829, end: 20230911
  64. BUPROPION [Concomitant]
     Active Substance: BUPROPION
     Indication: Product used for unknown indication
     Dates: start: 2012
  65. BUDESONIDE [Concomitant]
     Active Substance: BUDESONIDE
     Dates: start: 20240925
  66. CETIRIZINE [Concomitant]
     Active Substance: CETIRIZINE HYDROCHLORIDE
     Dates: start: 20250201, end: 20250203
  67. ESZOPICLONE [Concomitant]
     Active Substance: ESZOPICLONE
     Dates: start: 201606, end: 20230621

REACTIONS (1)
  - Acute respiratory failure [Recovered/Resolved]

NARRATIVE: CASE EVENT DATE: 20220106
